FAERS Safety Report 10092169 (Version 2)
Quarter: 2014Q2

REPORT INFORMATION
  Report Type: Spontaneous
  Country: US (occurrence: US)
  Receive Date: 20140421
  Receipt Date: 20140421
  Transmission Date: 20141212
  Serious: No
  Sender: FDA-Public Use
  Company Number: US-SANOFI-AVENTIS-2013SA015851

PATIENT
  Age: 64 Year
  Sex: Female

DRUGS (5)
  1. ALLEGRA [Suspect]
     Indication: URTICARIA
  2. ALLEGRA [Suspect]
     Indication: PRURITUS
  3. ALLEGRA [Suspect]
     Indication: HYPERSENSITIVITY
  4. XANAX [Suspect]
     Indication: URTICARIA
  5. XANAX [Suspect]
     Indication: ECZEMA

REACTIONS (10)
  - Pruritus [Not Recovered/Not Resolved]
  - Oliguria [Not Recovered/Not Resolved]
  - Dry mouth [Not Recovered/Not Resolved]
  - Dry skin [Not Recovered/Not Resolved]
  - Drug administration error [Unknown]
  - Throat tightness [Unknown]
  - Pain in extremity [Unknown]
  - Pain in jaw [Unknown]
  - Headache [Unknown]
  - Arthralgia [Unknown]
